FAERS Safety Report 12628819 (Version 2)
Quarter: 2016Q3

REPORT INFORMATION
  Report Type: Spontaneous
  Country: AU (occurrence: AU)
  Receive Date: 20160808
  Receipt Date: 20160812
  Transmission Date: 20161109
  Serious: Yes (Hospitalization)
  Sender: FDA-Public Use
  Company Number: PHHY2016AU104343

PATIENT
  Age: 43 Year
  Sex: Female

DRUGS (1)
  1. COSENTYX [Suspect]
     Active Substance: SECUKINUMAB
     Indication: PSORIASIS
     Route: 065

REACTIONS (5)
  - Throat tightness [Not Recovered/Not Resolved]
  - Dysphonia [Unknown]
  - Laryngitis [Unknown]
  - Dyspnoea [Not Recovered/Not Resolved]
  - Respiratory moniliasis [Unknown]

NARRATIVE: CASE EVENT DATE: 2016
